FAERS Safety Report 9500958 (Version 1)
Quarter: 2013Q3

REPORT INFORMATION
  Report Type: Spontaneous
  Country: GB (occurrence: GB)
  Receive Date: 20130905
  Receipt Date: 20130905
  Transmission Date: 20140515
  Serious: Yes (Other)
  Sender: FDA-Public Use
  Company Number: PHHY2013GB094135

PATIENT
  Age: 77 Year
  Sex: Male

DRUGS (4)
  1. RAMIPRIL [Suspect]
     Dosage: 5 MG, QD
  2. DOXAZOSIN [Suspect]
     Dates: start: 201307
  3. ASPIRIN [Concomitant]
     Dosage: 75 MG, UNK
  4. FELODIPINE [Concomitant]

REACTIONS (1)
  - Atrial fibrillation [Recovered/Resolved]
